FAERS Safety Report 21762595 (Version 1)
Quarter: 2022Q4

REPORT INFORMATION
  Report Type: Report from Study
  Country: US (occurrence: US)
  Receive Date: 20221221
  Receipt Date: 20221221
  Transmission Date: 20230113
  Serious: Yes (Hospitalization)
  Sender: FDA-Public Use
  Company Number: US-GILEAD-2022-0610305

PATIENT
  Sex: Female

DRUGS (4)
  1. AMBRISENTAN [Suspect]
     Active Substance: AMBRISENTAN
     Indication: Product used for unknown indication
     Dosage: 10 MG, QD
     Route: 065
     Dates: start: 20220419
  2. TYVASO [Concomitant]
     Active Substance: TREPROSTINIL
  3. TADALAFIL [Concomitant]
     Active Substance: TADALAFIL
  4. ELIQUIS [Concomitant]
     Active Substance: APIXABAN

REACTIONS (2)
  - Chest discomfort [Unknown]
  - Dyspnoea exertional [Unknown]
